FAERS Safety Report 9325459 (Version 2)
Quarter: 2014Q1

REPORT INFORMATION
  Report Type: Spontaneous
  Country: US (occurrence: None)
  Receive Date: 20130528
  Receipt Date: 20140218
  Transmission Date: 20141002
  Serious: Yes (Other)
  Sender: FDA-Public Use
  Company Number: AUR-APL-2013-04338

PATIENT
  Age: 61 Year
  Sex: Female

DRUGS (18)
  1. VENLAFAXINE (VENLAFAXINE) [Suspect]
     Indication: PRODUCT USED FOR UNKNOWN INDICATION
     Dosage: (37.5MG, 2 IN 1 D)
     Dates: start: 201105, end: 201107
  2. EFFEXOR XR [Suspect]
     Indication: DEPRESSION
     Dosage: 37.5MG, 2 IN 1 D
     Route: 048
     Dates: start: 201102
  3. ULTRAM [Suspect]
     Indication: BONE PAIN
     Dosage: 1 DOSAGE FORMS, 4 IN
     Route: 048
     Dates: start: 201109, end: 201304
  4. ALBUTEROL SULFATE (SALBUTAMOL SULFATE) [Concomitant]
  5. AMBIEN (ZOLPIDEM TARTRATE) [Concomitant]
  6. ASPIR-81 (ACETYLSACYCLIC ACID) [Concomitant]
  7. ATROVENT (IPRATROPIUM BROMIDE) [Concomitant]
  8. CALCIUM 500 WITH D (LEKOVIT CA) [Concomitant]
  9. CANASA (MESALAZINE) [Concomitant]
  10. CEVIMELINE (CEVIMELINE) [Concomitant]
  11. EVISTA (RALOXIFENE HYDROCHLORIDE) [Concomitant]
  12. FOLIC-ACID-VIT B6-VIT B12 (TRIOBE/01502401/) [Concomitant]
  13. GAVISON (GAVISON/00237601/) [Concomitant]
  14. HYDROCORTISONE (HYDROCORTISONE) [Concomitant]
  15. IPRATROPIUM BROMIDE (IPRATROPIUM BROMIDE) [Concomitant]
  16. ISOSORBIDE MONONITRATE (ISOSORBIDE MONONITRATE) [Concomitant]
  17. LIDOCAINE (LIDOCAINE) [Concomitant]
  18. LUMIGAN (BIMATOPROST) [Concomitant]

REACTIONS (6)
  - Confusional state [None]
  - Depression suicidal [None]
  - Incontinence [None]
  - Activities of daily living impaired [None]
  - Communication disorder [None]
  - Agitation [None]
